FAERS Safety Report 10943925 (Version 2)
Quarter: 2015Q2

REPORT INFORMATION
  Report Type: Spontaneous
  Country: JP (occurrence: JP)
  Receive Date: 20150323
  Receipt Date: 20150406
  Transmission Date: 20150821
  Serious: Yes (Disabling, Other)
  Sender: FDA-Public Use
  Company Number: JP-UCBSA-2015006521

PATIENT
  Age: 85 Year
  Sex: Male

DRUGS (7)
  1. CIMZIA [Suspect]
     Active Substance: CERTOLIZUMAB PEGOL
     Dosage: 200 MG, EV 2 WEEKS(QOW)
     Route: 058
     Dates: start: 20141231
  2. LYRICA [Suspect]
     Active Substance: PREGABALIN
     Dosage: 25 MG/DAY
     Route: 048
     Dates: start: 2015, end: 2015
  3. LYRICA [Suspect]
     Active Substance: PREGABALIN
     Indication: SPINAL COLUMN STENOSIS
     Dosage: 50 MG/DAY
     Route: 048
     Dates: start: 20150114, end: 20150208
  4. LYRICA [Suspect]
     Active Substance: PREGABALIN
     Dosage: 75 MG/DAY
     Route: 048
     Dates: start: 20150209, end: 201502
  5. PREDNISOLONE. [Concomitant]
     Active Substance: PREDNISOLONE
     Dosage: DAILY DOSE: 20 MG ( 5 MG AFTER DINNER WAS ADDED ON THE TREATMENT OF 5 MG THREE TIMES DAILY)
     Route: 048
     Dates: start: 2015
  6. CIMZIA [Suspect]
     Active Substance: CERTOLIZUMAB PEGOL
     Indication: RHEUMATOID ARTHRITIS
     Dosage: 400 MG, EV 2 WEEKS(QOW)
     Route: 058
     Dates: start: 20141119, end: 2014
  7. PREDNISOLONE. [Concomitant]
     Active Substance: PREDNISOLONE
     Indication: RHEUMATOID ARTHRITIS
     Dosage: 5 MG, 3X/DAY (TID)
     Route: 048

REACTIONS (5)
  - Back pain [Recovering/Resolving]
  - Malaise [Recovered/Resolved]
  - Rheumatoid arthritis [Unknown]
  - Peripheral swelling [Not Recovered/Not Resolved]
  - Hypoaesthesia [Recovered/Resolved]

NARRATIVE: CASE EVENT DATE: 20150221
